FAERS Safety Report 18506953 (Version 1)
Quarter: 2020Q4

REPORT INFORMATION
  Report Type: Spontaneous
  Country: US (occurrence: US)
  Receive Date: 20201114
  Receipt Date: 20201114
  Transmission Date: 20210114
  Serious: Yes (Other)
  Sender: FDA-Public Use
  Company Number: None

PATIENT
  Age: 60 Year
  Sex: Female
  Weight: 72 kg

DRUGS (19)
  1. GABAPENTIN. [Concomitant]
     Active Substance: GABAPENTIN
  2. CETIRIZINE [Concomitant]
     Active Substance: CETIRIZINE HYDROCHLORIDE
  3. THEOPHYLLINE [Concomitant]
     Active Substance: THEOPHYLLINE ANHYDROUS
  4. ASPIRINS [Concomitant]
  5. IPRATROPIUM BROMIDE. [Concomitant]
     Active Substance: IPRATROPIUM BROMIDE
  6. LINZESS [Concomitant]
     Active Substance: LINACLOTIDE
  7. SALONPAS PAIN RELIEF [Concomitant]
     Active Substance: MENTHOL\METHYL SALICYLATE
  8. CBD OIL [Concomitant]
     Active Substance: CANNABIDIOL\HERBALS
  9. DUPIXENT [Suspect]
     Active Substance: DUPILUMAB
     Indication: ASTHMA
     Dosage: ?          QUANTITY:3 INJECTION(S);?
     Route: 058
     Dates: start: 20201008, end: 20201026
  10. LEVOTHYROXINE. [Concomitant]
     Active Substance: LEVOTHYROXINE
  11. BIO FREEZE SPRAY [Concomitant]
  12. INCRUSE ELLIPTA [Concomitant]
     Active Substance: UMECLIDINIUM BROMIDE
  13. TRAMADOL. [Concomitant]
     Active Substance: TRAMADOL
  14. ENALAPRIL [Concomitant]
     Active Substance: ENALAPRIL
  15. NEBULIZERS [Concomitant]
  16. BREO ELLIPTA [Concomitant]
     Active Substance: FLUTICASONE FUROATE\VILANTEROL TRIFENATATE
  17. XOPENEX [Concomitant]
     Active Substance: LEVALBUTEROL HYDROCHLORIDE
  18. PRAVASTATIN. [Concomitant]
     Active Substance: PRAVASTATIN
  19. LEVALBUTEROL. [Concomitant]
     Active Substance: LEVALBUTEROL

REACTIONS (12)
  - Peripheral swelling [None]
  - Pain in extremity [None]
  - Pain [None]
  - Dyspnoea [None]
  - Contusion [None]
  - Throat irritation [None]
  - Dysphonia [None]
  - Swelling face [None]
  - Multiple allergies [None]
  - Dysphagia [None]
  - Oropharyngeal pain [None]
  - Pharyngeal swelling [None]

NARRATIVE: CASE EVENT DATE: 20201106
